FAERS Safety Report 4591958-9 (Version None)
Quarter: 2005Q1

REPORT INFORMATION
  Report Type: 
  Country: None (occurrence: None)
  Receive Date: 20050222
  Receipt Date: 20050210
  Transmission Date: 20050727
  Serious: Yes (Hospitalization)
  Sender: FDA-Public Use
  Company Number: 200416381BCC

PATIENT
  Age: 38 Year
  Sex: Male
  Weight: 122.4712 kg

DRUGS (1)
  1. ALEVE [Suspect]
     Indication: ANALGESIC EFFECT
     Dosage: 440 MG, PRN, ORAL
     Route: 048

REACTIONS (2)
  - ANGINA PECTORIS [None]
  - HYPERTENSION [None]
